FAERS Safety Report 8530819-7 (Version None)
Quarter: 2012Q3

REPORT INFORMATION
  Report Type: 
  Country: None (occurrence: None)
  Receive Date: 20120723
  Receipt Date: 20120718
  Transmission Date: 20120928
  Serious: Yes (Death)
  Sender: FDA-Public Use
  Company Number: DE-PFIZER INC-2012163965

PATIENT
  Age: 89 Year
  Sex: Male

DRUGS (17)
  1. HALOPERIDOL [Interacting]
     Dosage: 2.5 MG, UNK
  2. ISOSORBIDE DINITRATE [Suspect]
     Dosage: 120 MG, UNK
  3. HALOPERIDOL [Interacting]
     Dosage: 1.5 MG
  4. GALANTAMINE HYDROBROMIDE [Interacting]
     Dosage: 16 MG, UNK
  5. RISPERIDONE [Interacting]
     Dosage: 1 MG, 1X/DAY
  6. HYDROCHLOROTHIAZIDE [Suspect]
     Dosage: 25 MG, UNK
  7. ALFUZOSIN [Interacting]
     Dosage: 10 MG, UNK
  8. OXAZEPAM [Suspect]
     Dosage: 15 MG
  9. RISPERIDONE [Interacting]
     Dosage: 1.5 MG, UNK
  10. BISOPROLOL FUMARATE [Suspect]
     Dosage: 5 MG, UNK
  11. MELPERONE [Interacting]
     Dosage: 25 MG SIX TIMES DAILY
  12. OXAZEPAM [Suspect]
     Indication: INSOMNIA
     Dosage: 20 MG
  13. MELPERONE [Interacting]
     Dosage: 25 TO 50 MG FOUR TIMES DAILY
  14. ACETYLSALICYLIC ACID SRT [Suspect]
     Dosage: 100 MG, UNK
  15. HALOPERIDOL [Interacting]
     Dosage: 5 MG, UNK
  16. HALOPERIDOL [Interacting]
     Dosage: 3 MG, UNK
  17. CAPTOPRIL [Suspect]
     Dosage: 50 MG, UNK

REACTIONS (1)
  - DRUG INTERACTION [None]
